FAERS Safety Report 9859862 (Version 1)
Quarter: 2014Q1

REPORT INFORMATION
  Report Type: Spontaneous
  Country: IT (occurrence: IT)
  Receive Date: 20140131
  Receipt Date: 20140131
  Transmission Date: 20141002
  Serious: Yes (Other)
  Sender: FDA-Public Use
  Company Number: PHHY2014IT009368

PATIENT
  Age: 57 Year
  Sex: Female

DRUGS (4)
  1. PACLITAXEL [Suspect]
     Indication: BREAST CANCER
     Dosage: CYCLIC DOSE 130 MG, UNK
     Route: 042
     Dates: start: 20140103, end: 20140103
  2. HERCEPTIN [Concomitant]
     Dosage: 132 MG, UNK
     Route: 042
     Dates: start: 20140103, end: 20140103
  3. CARDIOCOR [Concomitant]
     Indication: HYPERTENSION
     Route: 048
  4. ANTRA [Concomitant]
     Dosage: 20 MG, UNK
     Route: 048

REACTIONS (2)
  - Dermatitis [Unknown]
  - Dermatitis exfoliative [Unknown]
